FAERS Safety Report 5506059-2 (Version None)
Quarter: 2007Q4

REPORT INFORMATION
  Report Type: 
  Country: None (occurrence: None)
  Receive Date: 20071102
  Receipt Date: 20071102
  Transmission Date: 20080405
  Serious: Yes (Other)
  Sender: FDA-Public Use
  Company Number: None

PATIENT
  Sex: Female
  Weight: 23.1334 kg

DRUGS (1)
  1. ZYRTEC [Suspect]
     Indication: RHINITIS ALLERGIC
     Dosage: 10 MG CHEWABLE TABLET ONCE DAILY PO
     Route: 048
     Dates: start: 20070915, end: 20071013

REACTIONS (3)
  - HALLUCINATIONS, MIXED [None]
  - NIGHTMARE [None]
  - SCHIZOPHRENIFORM DISORDER [None]
